FAERS Safety Report 5902537-2 (Version None)
Quarter: 2008Q3

REPORT INFORMATION
  Report Type: 
  Country: None (occurrence: None)
  Receive Date: 20080925
  Receipt Date: 20080912
  Transmission Date: 20090109
  Serious: Yes (Other)
  Sender: FDA-Public Use
  Company Number: 238726J08USA

PATIENT
  Age: 48 Year
  Sex: Female
  Weight: 70.3 kg

DRUGS (3)
  1. REBIF [Suspect]
     Indication: MULTIPLE SCLEROSIS
     Dosage: 44 MCG, 3 IN 1 WEEKS, SUBCUTANEOUS
     Route: 058
     Dates: start: 20070514
  2. SINGULAIR (MONTELUKAST /01362601/) [Concomitant]
  3. DETROL [Concomitant]

REACTIONS (3)
  - FATIGUE [None]
  - SINUS HEADACHE [None]
  - SINUSITIS [None]
